FAERS Safety Report 17826751 (Version 1)
Quarter: 2020Q2

REPORT INFORMATION
  Report Type: Spontaneous
  Country: US (occurrence: US)
  Receive Date: 20200527
  Receipt Date: 20200527
  Transmission Date: 20200714
  Serious: No
  Sender: FDA-Public Use
  Company Number: US-CIPLA LTD.-2020US01432

PATIENT

DRUGS (12)
  1. LISINOPRIL. [Concomitant]
     Active Substance: LISINOPRIL
     Indication: HYPERTENSION
     Dosage: 10 MILLIGRAM, UNK
     Route: 065
  2. GABAPENTIN. [Concomitant]
     Active Substance: GABAPENTIN
     Indication: ARTHRALGIA
     Dosage: 300 MILLIGRAM, BID (SEVERAL YEARS)
     Route: 065
  3. TRAZODONE HYDROCHLORIDE. [Concomitant]
     Active Substance: TRAZODONE HYDROCHLORIDE
     Indication: INSOMNIA
     Dosage: 50 MILLIGRAM, QD (ONE A DAY) 10 YEARS
     Route: 065
  4. VITAMINS NOS [Concomitant]
     Active Substance: VITAMINS
     Indication: PRODUCT USED FOR UNKNOWN INDICATION
     Dosage: UNK
     Route: 065
  5. PAROXETINE HCL [Concomitant]
     Active Substance: PAROXETINE HYDROCHLORIDE
     Indication: INSOMNIA
     Dosage: 40 MILLIGRAM, QD (AT NIGHT) 40 YEARS
     Route: 065
  6. DICLOFENAC [Suspect]
     Active Substance: DICLOFENAC
     Indication: ARTHRITIS
     Dosage: UNK, QD (ONCE A DAY)
     Route: 061
     Dates: start: 201707
  7. LEVOTHYROXINE SODIUM. [Concomitant]
     Active Substance: LEVOTHYROXINE SODIUM
     Indication: THYROID DISORDER
     Dosage: 50 MCG (EVERY DAY) FOR A LONG TIME
     Route: 065
  8. LISINOPRIL. [Concomitant]
     Active Substance: LISINOPRIL
     Dosage: 5 MILLIGRAM, UNK (SEVERAL YEARS)
     Route: 065
  9. OMEPRAZOLE. [Concomitant]
     Active Substance: OMEPRAZOLE
     Indication: GASTRIC ULCER
     Dosage: 20 MILLIGRAM, QD (ONCE A DAY) IMPRINTS AS E 67 WHICH IS A DARK PINK CAPSULE, FOR 3 YEARS
     Route: 065
  10. ATORVASTATIN [Concomitant]
     Active Substance: ATORVASTATIN
     Indication: BLOOD CHOLESTEROL INCREASED
     Dosage: 80 MILLIGRAM, QD (EACH MORNING) FROM SEVERAL YEARS
     Route: 065
  11. DULOXETINE HCL [Concomitant]
     Active Substance: DULOXETINE HYDROCHLORIDE
     Indication: ANTICIPATORY ANXIETY
     Dosage: 60 MILLIGRAM, QD (ONCE A DAY) IMPRINTS AS 03
     Route: 065
  12. BABY ASPIRIN [Concomitant]
     Active Substance: ASPIRIN
     Indication: CARDIOVASCULAR EVENT PROPHYLAXIS
     Dosage: 81 MILLIGRAM, QD (ONE EVERY DAY)
     Route: 065

REACTIONS (4)
  - Product odour abnormal [Unknown]
  - Off label use [Unknown]
  - Product use in unapproved indication [Unknown]
  - Dry skin [Not Recovered/Not Resolved]

NARRATIVE: CASE EVENT DATE: 201707
